FAERS Safety Report 6709323-4 (Version None)
Quarter: 2010Q2

REPORT INFORMATION
  Report Type: 
  Country: None (occurrence: None)
  Receive Date: 20100504
  Receipt Date: 20100427
  Transmission Date: 20101027
  Serious: Yes (Other)
  Sender: FDA-Public Use
  Company Number: US-ASTRAZENECA-2010SE02064

PATIENT
  Age: 48 Year
  Sex: Female
  Weight: 90.7 kg

DRUGS (26)
  1. SEROQUEL [Suspect]
     Indication: INSOMNIA
     Route: 048
     Dates: start: 20091125
  2. SEROQUEL [Suspect]
     Indication: AFFECTIVE DISORDER
     Route: 048
     Dates: start: 20091125
  3. SEROQUEL [Suspect]
     Indication: ANXIETY
     Route: 048
     Dates: start: 20091125
  4. SEROQUEL [Suspect]
     Route: 048
  5. SEROQUEL [Suspect]
     Route: 048
  6. SEROQUEL [Suspect]
     Route: 048
  7. SEROQUEL [Suspect]
     Route: 048
  8. SEROQUEL [Suspect]
     Route: 048
  9. SEROQUEL [Suspect]
     Route: 048
  10. SEROQUEL [Suspect]
     Route: 048
  11. SEROQUEL [Suspect]
     Route: 048
  12. SEROQUEL [Suspect]
     Route: 048
  13. SEROQUEL [Suspect]
     Route: 048
  14. SEROQUEL [Suspect]
     Route: 048
  15. SEROQUEL [Suspect]
     Route: 048
  16. SEROQUEL [Suspect]
     Route: 048
     Dates: start: 20100111
  17. SEROQUEL [Suspect]
     Route: 048
     Dates: start: 20100111
  18. SEROQUEL [Suspect]
     Route: 048
     Dates: start: 20100111
  19. SEROQUEL [Suspect]
     Route: 048
     Dates: start: 20100115, end: 20100119
  20. SEROQUEL [Suspect]
     Route: 048
     Dates: start: 20100115, end: 20100119
  21. SEROQUEL [Suspect]
     Route: 048
     Dates: start: 20100115, end: 20100119
  22. BIRTH CONTROL [Concomitant]
     Indication: BLADDER DISORDER
  23. MS CONTIN [Concomitant]
     Indication: PAIN
  24. ZOCOR [Concomitant]
     Indication: BLOOD CHOLESTEROL ABNORMAL
  25. MICARDIS [Concomitant]
     Indication: HYPERTENSION
  26. VALIUM [Concomitant]
     Indication: ANXIETY

REACTIONS (8)
  - BACK PAIN [None]
  - CHILLS [None]
  - HYPERHIDROSIS [None]
  - MYALGIA [None]
  - OEDEMA PERIPHERAL [None]
  - PAIN IN EXTREMITY [None]
  - RASH [None]
  - WEIGHT INCREASED [None]
